FAERS Safety Report 15938993 (Version 2)
Quarter: 2019Q1

REPORT INFORMATION
  Report Type: Spontaneous
  Country: IT (occurrence: IT)
  Receive Date: 20190208
  Receipt Date: 20190228
  Transmission Date: 20190417
  Serious: Yes (Life-Threatening)
  Sender: FDA-Public Use
  Company Number: IT-JNJFOC-20190204075

PATIENT
  Age: 85 Year
  Sex: Male

DRUGS (9)
  1. CETIRIZINE [Suspect]
     Active Substance: CETIRIZINE HYDROCHLORIDE
     Indication: PRODUCT USED FOR UNKNOWN INDICATION
     Route: 065
  2. IMATINIB. [Suspect]
     Active Substance: IMATINIB MESYLATE
     Indication: SYSTEMIC SCLERODERMA
     Route: 065
  3. IMATINIB. [Suspect]
     Active Substance: IMATINIB MESYLATE
     Indication: CHRONIC MYELOID LEUKAEMIA
     Route: 065
  4. CETIRIZINE [Suspect]
     Active Substance: CETIRIZINE HYDROCHLORIDE
     Route: 065
  5. PREDNISONE. [Suspect]
     Active Substance: PREDNISONE
     Indication: RASH ERYTHEMATOUS
     Route: 065
  6. IMATINIB. [Suspect]
     Active Substance: IMATINIB MESYLATE
     Indication: CHRONIC MYELOID LEUKAEMIA
     Route: 065
  7. IMATINIB. [Suspect]
     Active Substance: IMATINIB MESYLATE
     Indication: SYSTEMIC SCLERODERMA
     Route: 065
  8. IMATINIB. [Suspect]
     Active Substance: IMATINIB MESYLATE
     Indication: SYSTEMIC SCLERODERMA
     Route: 065
  9. IMATINIB. [Suspect]
     Active Substance: IMATINIB MESYLATE
     Indication: CHRONIC MYELOID LEUKAEMIA
     Route: 065

REACTIONS (3)
  - Drug hypersensitivity [Recovered/Resolved]
  - Rash erythematous [Recovered/Resolved]
  - Rash pruritic [Recovered/Resolved]
